FAERS Safety Report 10781030 (Version 1)
Quarter: 2015Q1

REPORT INFORMATION
  Report Type: Spontaneous
  Country: US (occurrence: US)
  Receive Date: 20150210
  Receipt Date: 20150210
  Transmission Date: 20150721
  Serious: No
  Sender: FDA-Public Use
  Company Number: US-GLAXOSMITHKLINE-A1064822A

PATIENT

DRUGS (12)
  1. CARBATROL [Concomitant]
     Active Substance: CARBAMAZEPINE
  2. WALGREEN NICOTINE [Suspect]
     Active Substance: NICOTINE
     Indication: EX-TOBACCO USER
     Route: 062
  3. VITAMINS [Concomitant]
     Active Substance: VITAMINS
  4. TOPAMAX [Concomitant]
     Active Substance: TOPIRAMATE
  5. CALCIUM [Concomitant]
     Active Substance: CALCIUM
  6. NICODERM CQ [Suspect]
     Active Substance: NICOTINE
     Indication: EX-TOBACCO USER
     Route: 062
     Dates: start: 20140305
  7. GABAPENTIN. [Concomitant]
     Active Substance: GABAPENTIN
  8. SIMVASTATIN. [Concomitant]
     Active Substance: SIMVASTATIN
  9. UNKNOWN MEDICATION [Concomitant]
     Active Substance: UNSPECIFIED INGREDIENT
  10. NICODERM CQ [Suspect]
     Active Substance: NICOTINE
     Route: 062
  11. ALPRAZOLAM. [Concomitant]
     Active Substance: ALPRAZOLAM
  12. TEPAZEPAN [Concomitant]

REACTIONS (6)
  - Drug ineffective [Unknown]
  - Drug administration error [Recovered/Resolved]
  - Application site reaction [Recovered/Resolved]
  - Hypersensitivity [Recovered/Resolved]
  - Pruritus [Recovered/Resolved]
  - Application site erythema [Recovering/Resolving]

NARRATIVE: CASE EVENT DATE: 20140312
